FAERS Safety Report 12443213 (Version 3)
Quarter: 2016Q4

REPORT INFORMATION
  Report Type: Report from Study
  Country: US (occurrence: US)
  Receive Date: 20160607
  Receipt Date: 20161006
  Transmission Date: 20170207
  Serious: Yes (Other)
  Sender: FDA-Public Use
  Company Number: US-JNJFOC-20160305075

PATIENT
  Age: 64 Year
  Sex: Male

DRUGS (1)
  1. IMBRUVICA [Suspect]
     Active Substance: IBRUTINIB
     Indication: CHRONIC LYMPHOCYTIC LEUKAEMIA
     Route: 048
     Dates: start: 20151225

REACTIONS (15)
  - Drug dose omission [Recovered/Resolved]
  - Oral disorder [Unknown]
  - Diarrhoea [Unknown]
  - Paralysis [Unknown]
  - Paraesthesia [Unknown]
  - Rash macular [Unknown]
  - Muscle spasms [Unknown]
  - Oral herpes [Unknown]
  - Dry skin [Unknown]
  - Hypoaesthesia [Unknown]
  - Musculoskeletal stiffness [Unknown]
  - Angina bullosa haemorrhagica [Unknown]
  - Back pain [Recovered/Resolved]
  - Increased viscosity of upper respiratory secretion [Not Recovered/Not Resolved]
  - Fatigue [Unknown]

NARRATIVE: CASE EVENT DATE: 2016
